FAERS Safety Report 11656547 (Version 5)
Quarter: 2016Q1

REPORT INFORMATION
  Report Type: Spontaneous
  Country: CA (occurrence: CA)
  Receive Date: 20151023
  Receipt Date: 20160329
  Transmission Date: 20160525
  Serious: Yes (Other)
  Sender: FDA-Public Use
  Company Number: PHHY2015CA124762

PATIENT
  Age: 49 Year
  Sex: Male

DRUGS (1)
  1. SANDOSTATIN LAR DEPOT [Suspect]
     Active Substance: OCTREOTIDE ACETATE
     Indication: SMALL INTESTINE CARCINOMA
     Dosage: 30 MG
     Route: 065
     Dates: start: 1999

REACTIONS (12)
  - Sleep disorder [Unknown]
  - Feeling hot [Unknown]
  - Headache [Unknown]
  - Dyspepsia [Unknown]
  - Diplopia [Unknown]
  - Heart rate irregular [Unknown]
  - Injection site infection [Unknown]
  - Injection site swelling [Unknown]
  - Nerve injury [Unknown]
  - Sensory disturbance [Unknown]
  - Feeling abnormal [Unknown]
  - Drug ineffective [Unknown]
